FAERS Safety Report 21244175 (Version 2)
Quarter: 2022Q3

REPORT INFORMATION
  Report Type: Spontaneous
  Country: JP (occurrence: JP)
  Receive Date: 20220823
  Receipt Date: 20220906
  Transmission Date: 20221027
  Serious: Yes (Hospitalization)
  Sender: FDA-Public Use
  Company Number: JP-TEVA-2022-JP-2066934

PATIENT
  Age: 76 Year
  Sex: Female
  Weight: 62.6 kg

DRUGS (3)
  1. LEVOFLOXACIN [Suspect]
     Active Substance: LEVOFLOXACIN
     Indication: Diverticulitis
     Dosage: 250 MILLIGRAM DAILY;
     Route: 048
  2. CEFMETAZOLE [Suspect]
     Active Substance: CEFMETAZOLE
     Indication: Diverticulitis
     Dosage: 6 GRAM DAILY;
     Route: 042
  3. ACETAMINOPHEN [Suspect]
     Active Substance: ACETAMINOPHEN
     Indication: Diverticulitis
     Route: 042

REACTIONS (3)
  - Hypoprothrombinaemia [Recovered/Resolved]
  - Vitamin K deficiency [Recovered/Resolved]
  - Drug ineffective [Unknown]
